FAERS Safety Report 15134417 (Version 2)
Quarter: 2018Q3

REPORT INFORMATION
  Report Type: Report from Study
  Country: JP (occurrence: JP)
  Receive Date: 20180712
  Receipt Date: 20180912
  Transmission Date: 20181010
  Serious: Yes (Death, Hospitalization, Other)
  Sender: FDA-Public Use
  Company Number: JP-PFIZER INC-2018267527

PATIENT
  Age: 73 Year
  Sex: Male
  Weight: 70 kg

DRUGS (22)
  1. GRANISETRON /01178102/ [Concomitant]
     Active Substance: GRANISETRON
     Dosage: 6 MG, QD
     Route: 042
     Dates: start: 20170728, end: 20170802
  2. LEVOFLOXACIN HEMIHYDRATE [Concomitant]
     Active Substance: LEVOFLOXACIN
     Dosage: 500 MG, QD
     Route: 048
     Dates: start: 20170913, end: 20171006
  3. VANCOMYCIN /00314402/ [Concomitant]
     Active Substance: VANCOMYCIN
     Dosage: 2 G, QD
     Route: 042
     Dates: start: 20171012, end: 20171016
  4. MEROPEN /01250502/ [Concomitant]
     Active Substance: MEROPENEM
     Dosage: 3 G, QD
     Route: 042
     Dates: start: 20170821, end: 20170912
  5. VIDAZA [Concomitant]
     Active Substance: AZACITIDINE
     Dosage: 60 MG, QD
     Route: 042
     Dates: start: 20171211, end: 20171215
  6. URIEF [Concomitant]
     Active Substance: SILODOSIN
     Dosage: 8 MG, QD
     Route: 048
     Dates: start: 20180123, end: 20180426
  7. APIXABAN [Interacting]
     Active Substance: APIXABAN
     Indication: DEEP VEIN THROMBOSIS
     Dosage: 2.5 MG, BID
     Route: 048
     Dates: start: 20170118, end: 20180112
  8. BIOFERMIN /07746301/ [Concomitant]
     Dosage: 1 G, QD
     Route: 048
     Dates: end: 20180507
  9. BIOFERMIN /07746301/ [Concomitant]
     Dosage: 1 G, QD
     Route: 048
     Dates: end: 20170731
  10. CRAVIT [Concomitant]
     Active Substance: LEVOFLOXACIN
     Dosage: 250 MG, QD
     Route: 048
     Dates: start: 20171226, end: 20180105
  11. CEFEPIME HYDROCHLORIDE. [Concomitant]
     Active Substance: CEFEPIME HYDROCHLORIDE
     Dosage: 4 G, QD
     Route: 042
     Dates: start: 20170806, end: 20170820
  12. SOLU?CORTEF [Concomitant]
     Active Substance: HYDROCORTISONE SODIUM SUCCINATE
     Dosage: 100 MG, QD
     Route: 042
     Dates: start: 20171215, end: 20171215
  13. FENTANYL /00174602/ [Concomitant]
     Active Substance: FENTANYL
     Dosage: 0.3 MG, QD
     Route: 042
     Dates: start: 20180504, end: 20180507
  14. FUNGUARD [Concomitant]
     Active Substance: MICAFUNGIN SODIUM
     Dosage: 150 MG, QD
     Route: 042
     Dates: start: 20180429, end: 20180507
  15. FLUCONAZOLE. [Suspect]
     Active Substance: FLUCONAZOLE
     Indication: PROPHYLAXIS
     Dosage: 100 MG, QD
     Route: 048
     Dates: end: 20171110
  16. FEBURIC [Concomitant]
     Active Substance: FEBUXOSTAT
     Dosage: 20 MG, QD
     Route: 048
     Dates: end: 20180507
  17. HYDREA [Concomitant]
     Active Substance: HYDROXYUREA
     Dosage: UNK
     Route: 048
     Dates: start: 20171220, end: 20180323
  18. NEXIUM [Concomitant]
     Active Substance: ESOMEPRAZOLE MAGNESIUM
     Dosage: 20 MG, QD
     Route: 048
     Dates: end: 20180507
  19. CYLOCIDE [Concomitant]
     Active Substance: CYTARABINE
     Dosage: 170 MG, QD
     Route: 042
     Dates: start: 20170728, end: 20170802
  20. IDAMYCIN [Concomitant]
     Active Substance: IDARUBICIN HYDROCHLORIDE
     Dosage: 20 MG, QD
     Route: 042
     Dates: start: 20170728, end: 20170802
  21. BAYASPIRIN [Suspect]
     Active Substance: ASPIRIN
     Indication: THROMBOSIS PROPHYLAXIS
     Dosage: 100 MG, QD
     Route: 065
     Dates: start: 20180112, end: 20180207
  22. CARBOCISTEINE [Concomitant]
     Active Substance: CARBOCYSTEINE
     Dosage: 750 MG, QD
     Route: 048
     Dates: start: 20170822, end: 20170826

REACTIONS (4)
  - Renal impairment [Recovering/Resolving]
  - Acute myeloid leukaemia recurrent [Unknown]
  - Embolism venous [Recovered/Resolved]
  - Drug interaction [Unknown]

NARRATIVE: CASE EVENT DATE: 20180207
